FAERS Safety Report 6051891-2 (Version None)
Quarter: 2009Q1

REPORT INFORMATION
  Report Type: 
  Country: None (occurrence: None)
  Receive Date: 20090121
  Receipt Date: 20090121
  Transmission Date: 20090719
  Serious: Yes (Hospitalization)
  Sender: FDA-Public Use
  Company Number: None

PATIENT
  Sex: Female
  Weight: 61.2356 kg

DRUGS (3)
  1. METOCLOPRAMIDE [Suspect]
     Indication: DIABETIC GASTROPARESIS
     Dosage: 10 MG TAB TWICE DAILY ORAL
     Route: 048
     Dates: start: 20080427, end: 20081228
  2. METOCLOPRAMIDE [Suspect]
     Indication: NAUSEA
     Dosage: 10 MG TAB TWICE DAILY ORAL
     Route: 048
     Dates: start: 20080427, end: 20081228
  3. METOCLOPRAMIDE [Suspect]
     Indication: VOMITING
     Dosage: 10 MG TAB TWICE DAILY ORAL
     Route: 048
     Dates: start: 20080427, end: 20081228

REACTIONS (2)
  - ATRIAL FIBRILLATION [None]
  - PARKINSON'S DISEASE [None]
